FAERS Safety Report 7755352-1 (Version None)
Quarter: 2011Q3

REPORT INFORMATION
  Report Type: 
  Country: None (occurrence: None)
  Receive Date: 20110916
  Receipt Date: 20110908
  Transmission Date: 20111222
  Serious: Yes (Hospitalization)
  Sender: FDA-Public Use
  Company Number: CA-JNJFOC-20110809051

PATIENT
  Age: 62 Year
  Sex: Male
  Weight: 104.33 kg

DRUGS (2)
  1. CETIRIZINE HCL [Suspect]
     Indication: SNEEZING
     Route: 048
     Dates: start: 20110810, end: 20110810
  2. CETIRIZINE HCL [Suspect]
     Indication: SEASONAL ALLERGY
     Route: 048
     Dates: start: 20110810, end: 20110810

REACTIONS (3)
  - TRANSIENT GLOBAL AMNESIA [None]
  - AGITATION [None]
  - TRANSIENT ISCHAEMIC ATTACK [None]
